FAERS Safety Report 6876884-4 (Version None)
Quarter: 2010Q2

REPORT INFORMATION
  Report Type: 
  Country: None (occurrence: None)
  Receive Date: 20100616
  Receipt Date: 20100420
  Transmission Date: 20101027
  Serious: No
  Sender: FDA-Public Use
  Company Number: DSA_43016_2010

PATIENT
  Sex: Female

DRUGS (7)
  1. XENAZINE [Suspect]
     Indication: HUNTINGTON'S CHOREA
     Dosage: SEE IMAGE
     Route: 048
     Dates: start: 20090701, end: 20091031
  2. XENAZINE [Suspect]
     Indication: HUNTINGTON'S CHOREA
     Dosage: SEE IMAGE
     Route: 048
     Dates: start: 20091031, end: 20100201
  3. XENAZINE [Suspect]
     Indication: HUNTINGTON'S CHOREA
     Dosage: SEE IMAGE
     Route: 048
     Dates: start: 20100201
  4. AMITRIPTYLINE HYDROCHLORIDE [Concomitant]
  5. ATENOLOL [Concomitant]
  6. CLONAZEPAM [Concomitant]
  7. HALDOL [Concomitant]

REACTIONS (4)
  - ACTIVITIES OF DAILY LIVING IMPAIRED [None]
  - DEPRESSION [None]
  - DRUG INTOLERANCE [None]
  - LETHARGY [None]
